FAERS Safety Report 4600805-8 (Version None)
Quarter: 2005Q1

REPORT INFORMATION
  Report Type: 
  Country: None (occurrence: None)
  Receive Date: 20050304
  Receipt Date: 20050223
  Transmission Date: 20050727
  Serious: Yes (Death, Hospitalization, Other)
  Sender: FDA-Public Use
  Company Number: 2005031734

PATIENT
  Age: 79 Year
  Sex: Male

DRUGS (2)
  1. BEXTRA [Suspect]
     Indication: ARTHRALGIA
     Dosage: SEE IMAGE
     Route: 048
     Dates: start: 20031105, end: 20031106
  2. BEXTRA [Suspect]
     Indication: ARTHRALGIA
     Dosage: SEE IMAGE
     Route: 048
     Dates: start: 20031107, end: 20031111

REACTIONS (5)
  - ACUTE MYOCARDIAL INFARCTION [None]
  - DIZZINESS [None]
  - DUODENAL ULCER [None]
  - SYNCOPE [None]
  - ULCER HAEMORRHAGE [None]
